FAERS Safety Report 7822634-4 (Version None)
Quarter: 2011Q4

REPORT INFORMATION
  Report Type: 
  Country: None (occurrence: None)
  Receive Date: 20111018
  Receipt Date: 20111003
  Transmission Date: 20120403
  Serious: Yes (Other)
  Sender: FDA-Public Use
  Company Number: IT-ARROW GEN-2011-16573

PATIENT
  Age: 34 Year
  Sex: Female

DRUGS (1)
  1. TOPIRAMATE [Suspect]
     Indication: COMPLEX PARTIAL SEIZURES
     Dosage: 200 - 300 MG DAILY

REACTIONS (5)
  - PARADOXICAL DRUG REACTION [None]
  - CONVULSION [None]
  - SPEECH DISORDER [None]
  - MYOCLONUS [None]
  - CONVERSION DISORDER [None]
